FAERS Safety Report 14481054 (Version 1)
Quarter: 2018Q1

REPORT INFORMATION
  Report Type: Report from Study
  Country: CA (occurrence: CA)
  Receive Date: 20180202
  Receipt Date: 20180202
  Transmission Date: 20180509
  Serious: Yes (Hospitalization, Other)
  Sender: FDA-Public Use
  Company Number: PHHY2018CA005496

PATIENT
  Sex: Female

DRUGS (2)
  1. TASIGNA [Suspect]
     Active Substance: NILOTINIB
     Indication: CHRONIC MYELOID LEUKAEMIA
     Dosage: 300 MG, BID
     Route: 048
     Dates: start: 20171202, end: 20180111
  2. WATER PILLS [Concomitant]
     Active Substance: UNSPECIFIED INGREDIENT
     Indication: PRODUCT USED FOR UNKNOWN INDICATION
     Route: 065

REACTIONS (10)
  - Pericardial effusion [Unknown]
  - Cardiac failure [Unknown]
  - Asthenia [Unknown]
  - Dyspnoea [Unknown]
  - Pleural effusion [Unknown]
  - Blood potassium decreased [Unknown]
  - Heart valve incompetence [Unknown]
  - Fear [Unknown]
  - Blood pressure decreased [Unknown]
  - Dysphonia [Unknown]
